FAERS Safety Report 12160855 (Version 6)
Quarter: 2016Q2

REPORT INFORMATION
  Report Type: Spontaneous
  Country: JP (occurrence: JP)
  Receive Date: 20160308
  Receipt Date: 20160524
  Transmission Date: 20160815
  Serious: Yes (Death, Hospitalization)
  Sender: FDA-Public Use
  Company Number: JP-JNJFOC-20160227356

PATIENT
  Age: 59 Year
  Sex: Female

DRUGS (14)
  1. SEROQUEL [Suspect]
     Active Substance: QUETIAPINE FUMARATE
     Indication: SCHIZOPHRENIA
     Route: 048
     Dates: start: 20121228
  2. CARBAMAZEPINE. [Suspect]
     Active Substance: CARBAMAZEPINE
     Indication: EPILEPSY
     Route: 048
     Dates: start: 20121228
  3. RIVOTRIL [Concomitant]
     Active Substance: CLONAZEPAM
     Indication: TREMOR
     Route: 048
     Dates: start: 20130809
  4. TASMOLIN [Concomitant]
     Active Substance: BIPERIDEN
     Indication: TREMOR
     Route: 048
     Dates: start: 20130127
  5. TRAZODONE [Concomitant]
     Active Substance: TRAZODONE HYDROCHLORIDE
     Indication: INSOMNIA
     Route: 048
     Dates: start: 20130221
  6. ZYPREXA [Suspect]
     Active Substance: OLANZAPINE
     Indication: SCHIZOPHRENIA
     Route: 048
     Dates: start: 20130115
  7. VEGETAMIN A [Concomitant]
     Active Substance: CHLORPROMAZINE HYDROCHLORIDE\PHENOBARBITAL\PROMETHAZINE
     Indication: INSOMNIA
     Route: 048
     Dates: start: 20130916
  8. HALOSTEN [Suspect]
     Active Substance: HALOPERIDOL
     Indication: SCHIZOPHRENIA
     Route: 048
     Dates: start: 20121228
  9. CARBAMAZEPINE. [Suspect]
     Active Substance: CARBAMAZEPINE
     Indication: SCHIZOPHRENIA
     Route: 048
     Dates: start: 20121228
  10. NITRAZEPAM [Concomitant]
     Active Substance: NITRAZEPAM
     Indication: INSOMNIA
     Route: 048
     Dates: start: 20130128
  11. HALOMONTH [Suspect]
     Active Substance: HALOPERIDOL DECANOATE
     Indication: SCHIZOPHRENIA
     Route: 030
     Dates: start: 20130518
  12. RISPERDAL [Suspect]
     Active Substance: RISPERIDONE
     Indication: SCHIZOPHRENIA
     Route: 048
     Dates: start: 20130413, end: 20131101
  13. PAXIL [Concomitant]
     Active Substance: PAROXETINE HYDROCHLORIDE
     Indication: ANXIETY
     Route: 048
     Dates: start: 20130701
  14. RHYTHMY [Concomitant]
     Active Substance: RILMAZAFONE HYDROCHLORIDE
     Indication: INSOMNIA
     Route: 048
     Dates: start: 20130323

REACTIONS (2)
  - Dysphagia [Fatal]
  - Pneumonia aspiration [Fatal]

NARRATIVE: CASE EVENT DATE: 20131126
